APPROVED DRUG PRODUCT: FINASTERIDE
Active Ingredient: FINASTERIDE
Strength: 1MG
Dosage Form/Route: TABLET;ORAL
Application: A076436 | Product #001 | TE Code: AB
Applicant: DR REDDYS LABORATORIES INC
Approved: Jul 28, 2006 | RLD: No | RS: No | Type: RX